FAERS Safety Report 8230598-7 (Version None)
Quarter: 2012Q1

REPORT INFORMATION
  Report Type: 
  Country: None (occurrence: None)
  Receive Date: 20120323
  Receipt Date: 20120316
  Transmission Date: 20120608
  Serious: Yes (Other)
  Sender: FDA-Public Use
  Company Number: US-JNJFOC-20120308805

PATIENT
  Age: 60 Year
  Sex: Female

DRUGS (1)
  1. NUCYNTA ER [Suspect]
     Indication: ORTHOPEDIC PROCEDURE
     Route: 048
     Dates: start: 20120101, end: 20120101

REACTIONS (4)
  - DYSPNOEA [None]
  - HALLUCINATION [None]
  - DYSKINESIA [None]
  - ABNORMAL DREAMS [None]
